FAERS Safety Report 18669151 (Version 1)
Quarter: 2020Q4

REPORT INFORMATION
  Report Type: Spontaneous
  Country: CN (occurrence: CN)
  Receive Date: 20201228
  Receipt Date: 20201228
  Transmission Date: 20210114
  Serious: Yes (Other)
  Sender: FDA-Public Use
  Company Number: CN-JNJFOC-20201235323

PATIENT
  Age: 38 Year
  Sex: Female
  Weight: 61 kg

DRUGS (4)
  1. RISPERDAL [Suspect]
     Active Substance: RISPERIDONE
     Indication: SCHIZOPHRENIA
     Route: 048
     Dates: start: 20201114, end: 20201116
  2. RISPERDAL [Suspect]
     Active Substance: RISPERIDONE
     Dosage: 1MG QD AND 2 MG QN
     Route: 048
     Dates: start: 20201116, end: 20201117
  3. RISPERDAL [Suspect]
     Active Substance: RISPERIDONE
     Dosage: 2MG BID
     Route: 048
     Dates: start: 20201117, end: 20201129
  4. RISPERDAL [Suspect]
     Active Substance: RISPERIDONE
     Dosage: 3MG PER DAY
     Route: 048
     Dates: start: 20201129

REACTIONS (3)
  - Blood uric acid increased [Recovering/Resolving]
  - Hyperprolactinaemia [Recovering/Resolving]
  - Galactorrhoea [Recovering/Resolving]

NARRATIVE: CASE EVENT DATE: 20201126
